FAERS Safety Report 7977689-3 (Version None)
Quarter: 2011Q4

REPORT INFORMATION
  Report Type: 
  Country: None (occurrence: None)
  Receive Date: 20111214
  Receipt Date: 20111128
  Transmission Date: 20120403
  Serious: No
  Sender: FDA-Public Use
  Company Number: US-AMGEN-USASP2011041022

PATIENT
  Age: 60 Year
  Sex: Female

DRUGS (10)
  1. HYDROCHLOROTHIAZIDE [Concomitant]
  2. GLIMEPIRIDE [Concomitant]
  3. LEVEMIR [Concomitant]
  4. HUMALOG [Concomitant]
  5. TRICOR [Concomitant]
  6. ENBREL [Suspect]
     Indication: PSORIATIC ARTHROPATHY
     Dosage: 50 MG, 2 TIMES/WK
     Route: 058
     Dates: start: 20110601
  7. JANUMET [Concomitant]
  8. SYNTHROID [Concomitant]
  9. VITAMIN D [Concomitant]
  10. EXFORGE [Concomitant]

REACTIONS (2)
  - FATIGUE [None]
  - PAIN THRESHOLD DECREASED [None]
